FAERS Safety Report 21920150 (Version 1)
Quarter: 2023Q1

REPORT INFORMATION
  Report Type: Spontaneous
  Country: FR (occurrence: FR)
  Receive Date: 20230127
  Receipt Date: 20230127
  Transmission Date: 20230417
  Serious: Yes (Life-Threatening)
  Sender: FDA-Public Use
  Company Number: None

PATIENT
  Age: 24 Year
  Sex: Female

DRUGS (2)
  1. NOREPINEPHRINE [Suspect]
     Active Substance: NOREPINEPHRINE
     Indication: Product used for unknown indication
     Dosage: 4 MILLIGRAM, 1 TOTAL
     Route: 042
     Dates: start: 20221010, end: 20221010
  2. ONDANSETRON [Concomitant]
     Active Substance: ONDANSETRON
     Indication: Procedural nausea
     Dosage: NOT ADMINISTERED
     Route: 042
     Dates: start: 20221010, end: 20221010

REACTIONS (4)
  - Stress cardiomyopathy [Recovered/Resolved]
  - Tachycardia [Recovered/Resolved]
  - Hypertension [Recovered/Resolved]
  - Wrong product administered [Recovered/Resolved]

NARRATIVE: CASE EVENT DATE: 20221010
